FAERS Safety Report 19005795 (Version 1)
Quarter: 2021Q1

REPORT INFORMATION
  Report Type: Spontaneous
  Country: IT (occurrence: IT)
  Receive Date: 20210314
  Receipt Date: 20210314
  Transmission Date: 20210420
  Serious: No
  Sender: FDA-Public Use
  Company Number: IT-ORGANON-O2103ITA001417

PATIENT
  Age: 76 Year
  Sex: Male

DRUGS (2)
  1. SALINE [SODIUM CHLORIDE] [Suspect]
     Active Substance: SODIUM CHLORIDE
     Indication: GINGIVITIS
     Dosage: 2 MG BETAMETHASONE DILUTED IN 5 ML OF SALINE SOLUTION USED AS MOUTHWASHES TWICE OR THREE TIMES A DAY
  2. BETAMETHASONE DIPROPIONATE. [Suspect]
     Active Substance: BETAMETHASONE DIPROPIONATE
     Indication: GINGIVITIS
     Dosage: 2 MG BETAMETHASONE DILUTED IN 5 ML OF SALINE SOLUTION USED AS MOUTHWASHES TWICE OR THREE TIMES A DAY

REACTIONS (2)
  - Product use in unapproved indication [Unknown]
  - Incorrect route of product administration [Unknown]
